FAERS Safety Report 17451331 (Version 3)
Quarter: 2020Q1

REPORT INFORMATION
  Report Type: Spontaneous
  Country: US (occurrence: US)
  Receive Date: 20200224
  Receipt Date: 20200306
  Transmission Date: 20200409
  Serious: No
  Sender: FDA-Public Use
  Company Number: US-PFIZER INC-2020078717

PATIENT
  Age: 62 Year
  Sex: Male
  Weight: 108.86 kg

DRUGS (1)
  1. XELJANZ [Suspect]
     Active Substance: TOFACITINIB CITRATE
     Indication: RHEUMATOID ARTHRITIS
     Dosage: 10 MG, DAILY (5MG, 2 TABLETS)
     Route: 048
     Dates: start: 2020

REACTIONS (4)
  - Herpes zoster [Recovering/Resolving]
  - Drug ineffective [Unknown]
  - Blister [Recovering/Resolving]
  - Pain [Not Recovered/Not Resolved]

NARRATIVE: CASE EVENT DATE: 2020
